FAERS Safety Report 23889277 (Version 2)
Quarter: 2024Q2

REPORT INFORMATION
  Report Type: Spontaneous
  Country: US (occurrence: US)
  Receive Date: 20240523
  Receipt Date: 20240523
  Transmission Date: 20240716
  Serious: Yes (Other)
  Sender: FDA-Public Use
  Company Number: US-AMGEN-USASP2024099322

PATIENT

DRUGS (2)
  1. ADALIMUMAB [Suspect]
     Active Substance: ADALIMUMAB\ISOPROPYL ALCOHOL
     Indication: Crohn^s disease
     Dosage: UNK
     Route: 065
  2. INFLIXIMAB [Suspect]
     Active Substance: INFLIXIMAB
     Indication: Crohn^s disease
     Dosage: UNK MILLIGRAM/KILOGRAM (LESS THAN 6 MG/KG OR 6-8 MG/KG OR MORE THAN 8 MG/KG)
     Route: 065

REACTIONS (13)
  - Cardiac failure [Unknown]
  - Latent tuberculosis [Unknown]
  - Neuropathy peripheral [Unknown]
  - Lupus-like syndrome [Unknown]
  - Histoplasmosis [Unknown]
  - Drug specific antibody present [Unknown]
  - Liver disorder [Unknown]
  - Infusion related reaction [Unknown]
  - Adverse event [Unknown]
  - Therapeutic product effect decreased [Unknown]
  - Drug ineffective [Unknown]
  - Psoriasis [Unknown]
  - Treatment noncompliance [Unknown]
